FAERS Safety Report 15821566 (Version 1)
Quarter: 2019Q1

REPORT INFORMATION
  Report Type: Spontaneous
  Country: NZ (occurrence: NZ)
  Receive Date: 20190114
  Receipt Date: 20190114
  Transmission Date: 20190417
  Serious: Yes (Other)
  Sender: FDA-Public Use
  Company Number: NZ-OTSUKA-15033764

PATIENT
  Age: 35 Year
  Sex: Female

DRUGS (2)
  1. ABILIFY [Suspect]
     Active Substance: ARIPIPRAZOLE
     Indication: SCHIZOAFFECTIVE DISORDER
     Dosage: 25 MG, UNK
     Route: 048
     Dates: start: 20090612
  2. SODIUM VALPROATE [Concomitant]
     Active Substance: VALPROATE SODIUM
     Indication: MOOD SWINGS
     Dosage: 1000 MG, QD
     Route: 048
     Dates: start: 2005

REACTIONS (1)
  - Euphoric mood [Recovered/Resolved]

NARRATIVE: CASE EVENT DATE: 20100315
